FAERS Safety Report 14798748 (Version 2)
Quarter: 2018Q2

REPORT INFORMATION
  Report Type: Report from Study
  Country: US (occurrence: US)
  Receive Date: 20180424
  Receipt Date: 20180523
  Transmission Date: 20180711
  Serious: No
  Sender: FDA-Public Use
  Company Number: PHEH2018US015750

PATIENT
  Sex: Female

DRUGS (1)
  1. COSENTYX [Suspect]
     Active Substance: SECUKINUMAB
     Indication: PSORIATIC ARTHROPATHY
     Dosage: 300 MG, QW
     Route: 058

REACTIONS (7)
  - Decreased appetite [Unknown]
  - Pain [Unknown]
  - Fibromyalgia [Unknown]
  - Weight increased [Unknown]
  - Malaise [Unknown]
  - Restless legs syndrome [Unknown]
  - Drug ineffective [Unknown]
